FAERS Safety Report 17031092 (Version 3)
Quarter: 2020Q1

REPORT INFORMATION
  Report Type: Report from Study
  Country: US (occurrence: US)
  Receive Date: 20191114
  Receipt Date: 20200214
  Transmission Date: 20200409
  Serious: Yes (Hospitalization, Other)
  Sender: FDA-Public Use
  Company Number: US-B.I. PHARMACEUTICALS,INC./RIDGEFIELD-2019-MR-000518

PATIENT
  Sex: Male
  Weight: 114.76 kg

DRUGS (6)
  1. METFORMIN [Concomitant]
     Active Substance: METFORMIN HYDROCHLORIDE
     Indication: PRODUCT USED FOR UNKNOWN INDICATION
     Dosage: EXTENDED RELEASE TAB(S) ORALLY 2 TIMES A DAY
     Route: 048
  2. OFEV [Suspect]
     Active Substance: NINTEDANIB
     Indication: IDIOPATHIC PULMONARY FIBROSIS
     Route: 048
     Dates: start: 20190610
  3. SIMVASTATIN. [Concomitant]
     Active Substance: SIMVASTATIN
     Indication: PRODUCT USED FOR UNKNOWN INDICATION
     Dosage: 1 TAB (S) ORALLY ONCE A DAY (AT BEDTIME)
     Route: 048
  4. ASPIRIN 81 [Concomitant]
     Active Substance: ASPIRIN
     Indication: PRODUCT USED FOR UNKNOWN INDICATION
     Dosage: CHEWABLE 1 TAB (S) CHEWED ONCE A DAY
     Route: 048
  5. SODIUM CARBONATE MONOHYDRATE [Concomitant]
     Indication: PRODUCT USED FOR UNKNOWN INDICATION
     Route: 065
  6. LEVEMIR [Concomitant]
     Active Substance: INSULIN DETEMIR
     Indication: PRODUCT USED FOR UNKNOWN INDICATION
     Dosage: STRENGTH AND UNIT DOSE: 85
     Route: 065

REACTIONS (12)
  - Blood loss anaemia [Unknown]
  - Haematochezia [Unknown]
  - Alopecia [Unknown]
  - Diarrhoea [Unknown]
  - Haemoglobin decreased [Recovering/Resolving]
  - Chest pain [Recovered/Resolved]
  - Abdominal discomfort [Unknown]
  - Abdominal tenderness [Unknown]
  - Diverticulum intestinal haemorrhagic [Unknown]
  - Haematocrit decreased [Unknown]
  - Diarrhoea [Recovered/Resolved with Sequelae]
  - Painful respiration [Not Recovered/Not Resolved]

NARRATIVE: CASE EVENT DATE: 2019
